FAERS Safety Report 18904938 (Version 1)
Quarter: 2021Q1

REPORT INFORMATION
  Report Type: Spontaneous
  Country: US (occurrence: US)
  Receive Date: 20210217
  Receipt Date: 20210217
  Transmission Date: 20210420
  Serious: Yes (Disabling)
  Sender: FDA-Public Use
  Company Number: None

PATIENT
  Age: 56 Year
  Sex: Female
  Weight: 108 kg

DRUGS (4)
  1. GLATIRAMER [Suspect]
     Active Substance: GLATIRAMER
     Indication: MULTIPLE SCLEROSIS
     Route: 058
  2. TRAZODONE [Concomitant]
     Active Substance: TRAZODONE HYDROCHLORIDE
  3. GLATOPA [Suspect]
     Active Substance: GLATIRAMER ACETATE
  4. MELATONIN [Concomitant]
     Active Substance: MELATONIN

REACTIONS (6)
  - Injection site mass [None]
  - Myalgia [None]
  - Chills [None]
  - Injection site bruising [None]
  - Aphasia [None]
  - Mobility decreased [None]
